FAERS Safety Report 12675733 (Version 1)
Quarter: 2016Q3

REPORT INFORMATION
  Report Type: Spontaneous
  Country: US (occurrence: None)
  Receive Date: 20160822
  Receipt Date: 20160822
  Transmission Date: 20161109
  Serious: Yes (Other)
  Sender: FDA-Public Use
  Company Number: None

PATIENT
  Age: 75 Year
  Sex: Male
  Weight: 95.26 kg

DRUGS (1)
  1. EMPAGLIFOZIN, 10 MG [Suspect]
     Active Substance: EMPAGLIFLOZIN
     Indication: TYPE 2 DIABETES MELLITUS
     Dates: start: 20160217, end: 20160718

REACTIONS (5)
  - Blood pressure decreased [None]
  - Fatigue [None]
  - Night sweats [None]
  - Hyperhidrosis [None]
  - Micturition disorder [None]

NARRATIVE: CASE EVENT DATE: 20160615
